FAERS Safety Report 10872076 (Version 12)
Quarter: 2016Q2

REPORT INFORMATION
  Report Type: Report from Study
  Country: CA (occurrence: CA)
  Receive Date: 20150226
  Receipt Date: 20160623
  Transmission Date: 20160815
  Serious: Yes (Hospitalization, Other)
  Sender: FDA-Public Use
  Company Number: PHHY2014CA100067

PATIENT
  Age: 58 Year
  Sex: Male

DRUGS (1)
  1. SANDOSTATIN LAR DEPOT [Suspect]
     Active Substance: OCTREOTIDE ACETATE
     Indication: METASTATIC CARCINOID TUMOUR
     Dosage: 30 MG, QMO (EVERY 4 WEEKS)
     Route: 030
     Dates: start: 20140708

REACTIONS (19)
  - Pleural effusion [Unknown]
  - Malignant neoplasm progression [Unknown]
  - Blood pressure systolic increased [Unknown]
  - Abdominal distension [Unknown]
  - Discomfort [Unknown]
  - Pneumonia [Recovering/Resolving]
  - General physical health deterioration [Unknown]
  - Body temperature decreased [Unknown]
  - Oedema [Recovering/Resolving]
  - Dyspnoea [Unknown]
  - Infection [Recovered/Resolved]
  - Blood pressure diastolic decreased [Unknown]
  - Diarrhoea [Unknown]
  - Dyspnoea [Recovered/Resolved]
  - Heart rate decreased [Unknown]
  - Blood pressure decreased [Unknown]
  - Heart rate increased [Unknown]
  - Pancreatic carcinoma [Unknown]
  - Blood pressure increased [Unknown]

NARRATIVE: CASE EVENT DATE: 20140807
